FAERS Safety Report 5106903-7 (Version None)
Quarter: 2006Q3

REPORT INFORMATION
  Report Type: 
  Country: None (occurrence: None)
  Receive Date: 20060913
  Receipt Date: 20060901
  Transmission Date: 20061208
  Serious: Yes (Other)
  Sender: FDA-Public Use
  Company Number: 2006-BP-10381RO

PATIENT
  Age: 16 Year
  Sex: Female

DRUGS (3)
  1. CYCLOPHOSPHAMIDE [Suspect]
     Indication: RETINOBLASTOMA
  2. VINCRISTINE [Suspect]
     Indication: RETINOBLASTOMA
  3. RADIOTHERAPY (THERAPEUTIC RADIOPHARMACEUTICALS) [Suspect]
     Indication: RETINOBLASTOMA

REACTIONS (2)
  - LEIOMYOSARCOMA [None]
  - URINARY BLADDER SARCOMA [None]
